FAERS Safety Report 4936922-2 (Version None)
Quarter: 2006Q1

REPORT INFORMATION
  Report Type: 
  Country: None (occurrence: None)
  Receive Date: 20060307
  Receipt Date: 20050930
  Transmission Date: 20060701
  Serious: Yes (Hospitalization, Disabling)
  Sender: FDA-Public Use
  Company Number: PR-MERCK-0510USA01604

PATIENT
  Age: 41 Year
  Sex: Male
  Weight: 81 kg

DRUGS (2)
  1. VIOXX [Suspect]
     Indication: BACK PAIN
     Route: 048
     Dates: start: 19990101, end: 20010101
  2. VIOXX [Suspect]
     Route: 048

REACTIONS (6)
  - ANGINA PECTORIS [None]
  - CARDIAC DISORDER [None]
  - CORONARY ARTERY DISEASE [None]
  - DEPRESSION [None]
  - MYOCARDIAL INFARCTION [None]
  - OVERDOSE [None]
